FAERS Safety Report 8501426-7 (Version None)
Quarter: 2012Q3

REPORT INFORMATION
  Report Type: 
  Country: None (occurrence: None)
  Receive Date: 20120710
  Receipt Date: 20120706
  Transmission Date: 20120928
  Serious: Yes (Death, Hospitalization)
  Sender: FDA-Public Use
  Company Number: DE-GILEAD-2012-0057357

PATIENT
  Sex: Male

DRUGS (9)
  1. METOPROLOL                         /00376902/ [Concomitant]
     Route: 065
  2. RAMIPRIL [Concomitant]
     Route: 048
  3. PANTOPRAZOLE [Concomitant]
     Route: 065
  4. AMBRISENTAN [Suspect]
     Indication: PULMONARY HYPERTENSION
     Dosage: 5MG PER DAY
     Route: 048
     Dates: start: 20120405, end: 20120505
  5. TORSEMIDE [Concomitant]
     Route: 048
  6. AZATHIOPRINE                       /00001502/ [Concomitant]
     Indication: SYSTEMIC SCLEROSIS
     Dosage: UNK
     Dates: start: 20080101
  7. PREDNISOLONE [Concomitant]
     Indication: SYSTEMIC SCLEROSIS
     Dosage: UNK
     Route: 065
     Dates: start: 20080101
  8. ACTONEL [Concomitant]
     Dosage: UNK
     Route: 048
     Dates: start: 20120101
  9. SPIRONOLACTONE [Concomitant]
     Route: 048

REACTIONS (1)
  - DEATH [None]
